FAERS Safety Report 9350191 (Version 2)
Quarter: 2013Q2

REPORT INFORMATION
  Report Type: Spontaneous
  Country: GB (occurrence: GB)
  Receive Date: 20130617
  Receipt Date: 20130620
  Transmission Date: 20140414
  Serious: Yes (Other)
  Sender: FDA-Public Use
  Company Number: GB-ROCHE-1159637

PATIENT
  Age: 41 Year
  Sex: Male

DRUGS (7)
  1. PEG-INTERFERON ALFA 2A [Suspect]
     Indication: HEPATIC FIBROSIS
     Route: 065
     Dates: start: 201208
  2. RIBAVIRIN [Suspect]
     Indication: HEPATIC FIBROSIS
     Route: 065
     Dates: start: 201208
  3. CLOZARIL [Suspect]
     Indication: SCHIZOPHRENIA
     Route: 048
     Dates: start: 20080806
  4. GABAPENTIN [Concomitant]
     Indication: EPILEPSY
     Route: 048
  5. LANSOPRAZOLE [Concomitant]
     Indication: DYSPEPSIA
     Route: 048
  6. SUBOXONE [Concomitant]
     Route: 048
  7. ZOPICLONE [Concomitant]
     Indication: INSOMNIA
     Route: 065

REACTIONS (5)
  - Chronic hepatitis C [Not Recovered/Not Resolved]
  - Hepatic fibrosis [Not Recovered/Not Resolved]
  - Neutrophil count decreased [Recovered/Resolved]
  - Platelet count decreased [Recovered/Resolved]
  - White blood cell count decreased [Recovered/Resolved]
